FAERS Safety Report 4513480-8 (Version None)
Quarter: 2004Q4

REPORT INFORMATION
  Report Type: 
  Country: None (occurrence: None)
  Receive Date: 20041130
  Receipt Date: 20041119
  Transmission Date: 20050328
  Serious: Yes (Other)
  Sender: FDA-Public Use
  Company Number: 200414362FR

PATIENT
  Sex: Female

DRUGS (1)
  1. KETEK [Suspect]
     Indication: TONSILLITIS

REACTIONS (2)
  - DRUG HYPERSENSITIVITY [None]
  - PSORIASIS [None]
